FAERS Safety Report 11074179 (Version 2)
Quarter: 2015Q2

REPORT INFORMATION
  Report Type: Spontaneous
  Country: US (occurrence: None)
  Receive Date: 20150427
  Receipt Date: 20150526
  Transmission Date: 20150821
  Serious: Yes (Other)
  Sender: FDA-Public Use
  Company Number: 2015RIS00047

PATIENT
  Age: 35 Year
  Sex: Female
  Weight: 113.4 kg

DRUGS (1)
  1. CROMOLYN SODIUM. [Suspect]
     Active Substance: CROMOLYN SODIUM
     Indication: MASTOCYTOSIS
     Route: 042
     Dates: start: 20150323, end: 20150323

REACTIONS (16)
  - Erythema [None]
  - Tenderness [None]
  - Medical device complication [None]
  - Venous injury [None]
  - Heart rate increased [None]
  - Catheter site pain [None]
  - Venous thrombosis [None]
  - Anxiety [None]
  - Catheter site swelling [None]
  - Thrombophlebitis superficial [None]
  - Peripheral swelling [None]
  - Incorrect route of drug administration [None]
  - Flushing [None]
  - Change of bowel habit [None]
  - Pain [None]
  - Joint range of motion decreased [None]

NARRATIVE: CASE EVENT DATE: 201503
